FAERS Safety Report 7554064-7 (Version None)
Quarter: 2011Q2

REPORT INFORMATION
  Report Type: 
  Country: None (occurrence: None)
  Receive Date: 20110617
  Receipt Date: 20110606
  Transmission Date: 20111010
  Serious: Yes (Hospitalization)
  Sender: FDA-Public Use
  Company Number: DE-PFIZER INC-2011090411

PATIENT
  Age: 67 Year
  Sex: Male

DRUGS (7)
  1. ZOLPIDEM [Concomitant]
     Dosage: 10 MG, 1X/DAY
     Dates: start: 19970101
  2. MARCUMAR [Concomitant]
     Dosage: 3 MG, 1X/DAY
     Dates: start: 19970101
  3. ALLOPURINOL [Concomitant]
     Dosage: 300 MG, 1X/DAY
     Dates: start: 19970101
  4. METOPROLOL SUCCINATE [Concomitant]
     Dosage: 47.5 MG, 1X/DAY
     Dates: start: 19970101
  5. MAGNESIUM [Concomitant]
     Dosage: 5 MMOL, 1X/DAY
     Dates: start: 19970101
  6. CARMEN [Concomitant]
     Dosage: 20 MG, 1X/DAY
     Dates: start: 19970101
  7. SUTENT [Suspect]
     Indication: METASTATIC RENAL CELL CARCINOMA
     Dosage: ACCORDING TO PROTOCOL
     Dates: start: 20100217, end: 20100312

REACTIONS (2)
  - STOMATITIS [None]
  - CAROTID ARTERY STENOSIS [None]
